FAERS Safety Report 10211306 (Version 1)
Quarter: 2014Q2

REPORT INFORMATION
  Report Type: Spontaneous
  Country: US (occurrence: US)
  Receive Date: 20140602
  Receipt Date: 20140602
  Transmission Date: 20141212
  Serious: Yes (Other)
  Sender: FDA-Public Use
  Company Number: US-BAYER-2014-079135

PATIENT
  Age: 9 Year
  Sex: Male
  Weight: 49.89 kg

DRUGS (2)
  1. ALEVE CAPLET [Suspect]
     Dosage: 50 DF, ONCE
     Route: 048
     Dates: start: 20140523, end: 20140523
  2. ADDERALL [Concomitant]

REACTIONS (2)
  - Accidental overdose [None]
  - Abdominal pain upper [Not Recovered/Not Resolved]
